FAERS Safety Report 5299222-X (Version None)
Quarter: 2007Q2

REPORT INFORMATION
  Report Type: 
  Country: None (occurrence: None)
  Receive Date: 20070411
  Receipt Date: 20070411
  Transmission Date: 20071010
  Serious: Yes (Hospitalization)
  Sender: FDA-Public Use
  Company Number: None

PATIENT
  Age: 68 Year

DRUGS (9)
  1. NAPROSYN [Suspect]
     Indication: PAIN
     Dosage: OTC USE  3X PER WEEK  PO
     Route: 048
  2. INDOCIN [Suspect]
     Indication: GOUT
     Dosage: PREVIOUS  RX FOR FLARE  PO
     Route: 048
  3. ASPIRIN [Suspect]
     Indication: CORONARY ARTERY DISEASE
     Dosage: 81 MG DAILY PO
     Route: 048
  4. COLCHICINE [Concomitant]
  5. EZETIMIBE [Concomitant]
  6. DILTIAZEM [Concomitant]
  7. PYRIDOXINE HCL [Concomitant]
  8. HYDRALAZINE HCL [Concomitant]
  9. HYDROCHLOROTHIAZIDE [Concomitant]

REACTIONS (5)
  - GASTROINTESTINAL HAEMORRHAGE [None]
  - HAEMATOCRIT DECREASED [None]
  - HAEMOGLOBIN DECREASED [None]
  - MALAISE [None]
  - MELAENA [None]
